FAERS Safety Report 4948947-1 (Version None)
Quarter: 2006Q1

REPORT INFORMATION
  Report Type: 
  Country: None (occurrence: None)
  Receive Date: 20060321
  Receipt Date: 20051229
  Transmission Date: 20060701
  Serious: Yes (Death, Hospitalization)
  Sender: FDA-Public Use
  Company Number: US-BRISTOL-MYERS SQUIBB COMPANY-13232772

PATIENT
  Age: 81 Year
  Sex: Male

DRUGS (7)
  1. CETUXIMAB [Suspect]
     Indication: NON-SMALL CELL LUNG CANCER
     Route: 042
     Dates: start: 20051227, end: 20051227
  2. CARBOPLATIN [Suspect]
     Indication: NON-SMALL CELL LUNG CANCER
     Route: 042
     Dates: start: 20051227, end: 20051227
  3. DOCETAXEL [Suspect]
     Indication: NON-SMALL CELL LUNG CANCER
     Route: 042
     Dates: start: 20051227, end: 20051227
  4. AMBIEN [Concomitant]
     Dates: start: 20050820
  5. DOXYCYCLINE [Concomitant]
     Dates: start: 20050823
  6. IMODIUM [Concomitant]
     Dates: start: 20050912
  7. KEFLEX [Concomitant]
     Dates: start: 20050912

REACTIONS (4)
  - ATRIAL FIBRILLATION [None]
  - MUCOSAL INFLAMMATION [None]
  - PNEUMONIA ASPIRATION [None]
  - STOMATITIS [None]
